FAERS Safety Report 12179811 (Version 2)
Quarter: 2016Q1

REPORT INFORMATION
  Report Type: Spontaneous
  Country: SE (occurrence: SE)
  Receive Date: 20160315
  Receipt Date: 20160317
  Transmission Date: 20160526
  Serious: Yes (Other)
  Sender: FDA-Public Use
  Company Number: SE-TOLMAR, INC.-2016SE002353

PATIENT
  Sex: Male

DRUGS (3)
  1. ALFAZOSIN [Concomitant]
     Active Substance: ALFUZOSIN
  2. BICALUTAMID [Concomitant]
     Active Substance: BICALUTAMIDE
  3. ELIGARD [Suspect]
     Active Substance: LEUPROLIDE ACETATE
     Indication: PROSTATE CANCER
     Dosage: UNK
     Route: 065

REACTIONS (2)
  - Prostatic specific antigen increased [Unknown]
  - Drug ineffective [Unknown]
